FAERS Safety Report 5045050-X (Version None)
Quarter: 2006Q2

REPORT INFORMATION
  Report Type: 
  Country: None (occurrence: None)
  Receive Date: 20060601
  Receipt Date: 20060313
  Transmission Date: 20061013
  Serious: No
  Sender: FDA-Public Use
  Company Number: US200603003516

PATIENT
  Age: 73 Year
  Sex: Male
  Weight: 86.2 kg

DRUGS (10)
  1. CYMBALTA [Suspect]
     Indication: BURNING SENSATION
     Dosage: 60 MG, DAILY (1/D)
     Dates: start: 20060123, end: 20060311
  2. FINASTERIDE [Concomitant]
  3. FELODIPINE [Concomitant]
  4. TERAZOSIN (TERAZOSIN) [Concomitant]
  5. SYNTHROID [Concomitant]
  6. LOVASTATIN [Concomitant]
  7. CAPTOPRIL [Concomitant]
  8. GABAPENTIN [Concomitant]
  9. AMITRIPTYLINE (AMITRIPTYLINE) [Concomitant]
  10. CAPSAICIN (CAPSAICIN) [Concomitant]

REACTIONS (5)
  - ANOREXIA [None]
  - INSOMNIA [None]
  - PAIN [None]
  - PRURITUS [None]
  - WEIGHT DECREASED [None]
